FAERS Safety Report 13732922 (Version 5)
Quarter: 2018Q1

REPORT INFORMATION
  Report Type: Spontaneous
  Country: US (occurrence: US)
  Receive Date: 20170707
  Receipt Date: 20180213
  Transmission Date: 20180508
  Serious: Yes (Other)
  Sender: FDA-Public Use
  Company Number: US-JAZZ-2017-US-008246

PATIENT
  Age: 41 Year
  Sex: Female

DRUGS (9)
  1. XYREM [Suspect]
     Active Substance: SODIUM OXYBATE
     Dosage: 4.5 G, BID
     Dates: start: 2017
  2. XYREM [Suspect]
     Active Substance: SODIUM OXYBATE
     Dosage: 3.25 G, QD, SECOND DOSE
     Route: 048
     Dates: start: 20170625
  3. METOPROLOL TARTRATE. [Suspect]
     Active Substance: METOPROLOL TARTRATE
     Indication: HYPERTENSION
  4. PRISTIQ EXTENDED-RELEASE [Suspect]
     Active Substance: DESVENLAFAXINE SUCCINATE
     Indication: PRODUCT USED FOR UNKNOWN INDICATION
     Dosage: UNK
  5. XYREM [Suspect]
     Active Substance: SODIUM OXYBATE
     Indication: NARCOLEPSY
     Dosage: 2.25G, BID
     Route: 048
     Dates: start: 20170623, end: 20170624
  6. XYREM [Suspect]
     Active Substance: SODIUM OXYBATE
     Dosage: 3.25G, QD
     Route: 048
     Dates: start: 20170625
  7. AMBIEN [Suspect]
     Active Substance: ZOLPIDEM TARTRATE
     Indication: PRODUCT USED FOR UNKNOWN INDICATION
     Dosage: UNK
  8. XANAX [Suspect]
     Active Substance: ALPRAZOLAM
     Indication: PRODUCT USED FOR UNKNOWN INDICATION
  9. XYREM [Suspect]
     Active Substance: SODIUM OXYBATE
     Dosage: 3G, BID
     Route: 048
     Dates: start: 20170626

REACTIONS (35)
  - Muscle twitching [Recovering/Resolving]
  - Eye disorder [Unknown]
  - Fatigue [Not Recovered/Not Resolved]
  - Vomiting [Unknown]
  - Tremor [Unknown]
  - Fluid retention [Recovered/Resolved]
  - Lethargy [Not Recovered/Not Resolved]
  - Diplopia [Recovered/Resolved]
  - Feeling hot [Not Recovered/Not Resolved]
  - Chest pain [Unknown]
  - Chills [Not Recovered/Not Resolved]
  - Pollakiuria [Not Recovered/Not Resolved]
  - Drug dependence [Unknown]
  - Feeling abnormal [Unknown]
  - Oedema [Recovered/Resolved]
  - Intentional product use issue [Unknown]
  - Kidney infection [Recovered/Resolved]
  - Drug ineffective [Unknown]
  - Anxiety [Recovering/Resolving]
  - Pain [Not Recovered/Not Resolved]
  - Abdominal distension [Unknown]
  - Nausea [Not Recovered/Not Resolved]
  - Mood altered [Unknown]
  - Nervousness [Recovering/Resolving]
  - Hyperhidrosis [Recovered/Resolved]
  - Depressed mood [Recovering/Resolving]
  - Agitation [Unknown]
  - Hallucination [Unknown]
  - Somnolence [Not Recovered/Not Resolved]
  - Wrong technique in product usage process [Unknown]
  - Hypotension [Recovered/Resolved]
  - Secretion discharge [Not Recovered/Not Resolved]
  - Abnormal dreams [Unknown]
  - Insomnia [Unknown]
  - Headache [Unknown]

NARRATIVE: CASE EVENT DATE: 20160625
